FAERS Safety Report 14654924 (Version 1)
Quarter: 2018Q1

REPORT INFORMATION
  Report Type: Spontaneous
  Country: US (occurrence: US)
  Receive Date: 20180319
  Receipt Date: 20180319
  Transmission Date: 20180509
  Serious: Yes (Other)
  Sender: FDA-Public Use
  Company Number: US-GLAXOSMITHKLINE-US2018GSK045361

PATIENT
  Age: 75 Year
  Sex: Female

DRUGS (1)
  1. ADVAIR HFA [Suspect]
     Active Substance: FLUTICASONE PROPIONATE\SALMETEROL XINAFOATE
     Indication: ASTHMA
     Route: 055

REACTIONS (6)
  - Pneumonia [Recovering/Resolving]
  - Fatigue [Unknown]
  - Lung infection [Unknown]
  - Dysphonia [Unknown]
  - Asthma [Unknown]
  - Cough [Unknown]

NARRATIVE: CASE EVENT DATE: 201801
